FAERS Safety Report 6257498-6 (Version None)
Quarter: 2009Q3

REPORT INFORMATION
  Report Type: 
  Country: None (occurrence: None)
  Receive Date: 20090706
  Receipt Date: 20090630
  Transmission Date: 20100115
  Serious: Yes (Death)
  Sender: FDA-Public Use
  Company Number: NL-AVENTIS-200916463GDDC

PATIENT
  Age: 68 Year
  Sex: Male

DRUGS (8)
  1. DOCETAXEL [Suspect]
     Route: 042
     Dates: start: 20090616, end: 20090616
  2. OXALIPLATIN [Suspect]
     Route: 042
     Dates: start: 20090616, end: 20090616
  3. CAPECITABINE [Suspect]
     Dosage: DOSE: CUMMULATIVE DOSE 16,500 MG
     Route: 048
     Dates: start: 20090616, end: 20090620
  4. AVANDIA [Concomitant]
     Dates: start: 20041201, end: 20090620
  5. METFORMIN HCL [Concomitant]
     Dates: start: 20040907, end: 20090620
  6. SIMVASTATIN [Concomitant]
     Dates: start: 20090109, end: 20090620
  7. NEXIUM [Concomitant]
     Dates: start: 20090525, end: 20090620
  8. MOVICOLON [Concomitant]
     Dates: start: 20090609, end: 20090620

REACTIONS (1)
  - VENTRICULAR FIBRILLATION [None]
